FAERS Safety Report 24140616 (Version 1)
Quarter: 2024Q3

REPORT INFORMATION
  Report Type: Spontaneous
  Country: US (occurrence: None)
  Receive Date: 20240726
  Receipt Date: 20240726
  Transmission Date: 20241017
  Serious: Yes (Hospitalization, Other)
  Sender: ASTRAZENECA
  Company Number: 2024A165634

PATIENT

DRUGS (1)
  1. TEZSPIRE [Suspect]
     Active Substance: TEZEPELUMAB-EKKO
     Dosage: UNKNOWN

REACTIONS (9)
  - Asthma [Unknown]
  - Post-acute COVID-19 syndrome [Unknown]
  - COVID-19 [Unknown]
  - Atrial fibrillation [Unknown]
  - Laboratory test abnormal [Unknown]
  - Systemic lupus erythematosus [Unknown]
  - Hepatic steatosis [Unknown]
  - Weight decreased [Unknown]
  - Fatigue [Unknown]
